FAERS Safety Report 16186843 (Version 1)
Quarter: 2019Q2

REPORT INFORMATION
  Report Type: Report from Study
  Country: GB (occurrence: GB)
  Receive Date: 20190411
  Receipt Date: 20190411
  Transmission Date: 20190711
  Serious: Yes (Hospitalization)
  Sender: FDA-Public Use
  Company Number: GB-PFIZER INC-2019147942

PATIENT
  Age: 20 Year
  Sex: Male

DRUGS (13)
  1. TEICOPLANIN [Suspect]
     Active Substance: TEICOPLANIN
     Dosage: 600 MG, 1X/DAY (COMPOUNDED WITH SODIUM CHLORIDE 100ML AND WATER FOR INJECTION)
     Route: 042
     Dates: end: 20190313
  2. WATER FOR INJECTION [Suspect]
     Active Substance: WATER
     Indication: MEDICATION DILUTION
     Dosage: 1 UNK, 1X/DAY (COMPOUNDED WITH TEICOPLANIN)
     Route: 042
     Dates: end: 20190313
  3. WATER FOR INJECTION [Suspect]
     Active Substance: WATER
     Dosage: 1 UNK, 1X/DAY (COMPOUNDED WITH TEICOPLANIN)
     Route: 042
     Dates: end: 20190313
  4. TOBRAMYCIN. [Suspect]
     Active Substance: TOBRAMYCIN
     Dosage: 400 MG, 1X/DAY (COMPOUNDED WITH SODIUM CHLORIDE 100 ML)
     Route: 042
  5. BACTERIOSTATIC SODIUM CHLORIDE [Suspect]
     Active Substance: SODIUM CHLORIDE
     Dosage: COMPOUNDED WITH TOBRAMYCIN 400MG
     Route: 042
  6. TOBRAMYCIN. [Suspect]
     Active Substance: TOBRAMYCIN
     Dosage: 400 MG, 1X/DAY (COMPOUNDED WITH SODIUM CHLORIDE 100 ML)
     Route: 042
  7. TEICOPLANIN [Suspect]
     Active Substance: TEICOPLANIN
     Dosage: 600 MG, 1X/DAY (COMPOUNDED WITH SODIUM CHLORIDE 100ML AND WATER FOR INJECTION)
     Route: 042
     Dates: end: 20190313
  8. TEICOPLANIN [Suspect]
     Active Substance: TEICOPLANIN
     Dosage: 600 MG, 1X/DAY (COMPOUNDED WITH SODIUM CHLORIDE 100ML AND WATER FOR INJECTION)
     Route: 042
     Dates: end: 20190313
  9. MEROPENEM. [Suspect]
     Active Substance: MEROPENEM
     Dosage: 1 G, 1X/DAY
     Route: 042
  10. BACTERIOSTATIC SODIUM CHLORIDE [Suspect]
     Active Substance: SODIUM CHLORIDE
     Indication: MEDICATION DILUTION
     Dosage: 100 ML, 1X/DAY (COMPOUNDED WITH TEICOPLANIN 600MG)
     Route: 042
     Dates: end: 20190313
  11. WATER FOR INJECTION [Suspect]
     Active Substance: WATER
     Dosage: 1 UNK, 1X/DAY (COMPOUNDED WITH TEICOPLANIN)
     Route: 042
     Dates: end: 20190313
  12. BACTERIOSTATIC SODIUM CHLORIDE [Suspect]
     Active Substance: SODIUM CHLORIDE
     Dosage: 150 ML, UNK (ADMINISTERED VIA INTERMATE LV 250)
     Route: 042
  13. MEROPENEM. [Suspect]
     Active Substance: MEROPENEM
     Dosage: 500 MG, 1X/DAY
     Route: 042

REACTIONS (5)
  - Injection site warmth [Unknown]
  - Injection site erythema [Unknown]
  - Rash macular [Unknown]
  - Feeling hot [Unknown]
  - Injection site pruritus [Unknown]

NARRATIVE: CASE EVENT DATE: 20190313
